FAERS Safety Report 21600852 (Version 1)
Quarter: 2022Q4

REPORT INFORMATION
  Report Type: Spontaneous
  Country: US (occurrence: US)
  Receive Date: 20221116
  Receipt Date: 20221116
  Transmission Date: 20230113
  Serious: No
  Sender: FDA-Public Use
  Company Number: US-VIIV HEALTHCARE LIMITED-US2022AMR161137

PATIENT
  Age: 34 Year
  Sex: Male

DRUGS (2)
  1. RILPIVIRINE [Suspect]
     Active Substance: RILPIVIRINE
     Indication: Product used for unknown indication
     Route: 065
     Dates: start: 20221027
  2. CABENUVA [Suspect]
     Active Substance: CABOTEGRAVIR\RILPIVIRINE
     Indication: Product used for unknown indication
     Dosage: UNK UNK, Z EVERY 2 MONTHS
     Route: 065
     Dates: start: 20221027

REACTIONS (4)
  - Pain [Unknown]
  - Tenderness [Unknown]
  - Mass [Unknown]
  - Nodule [Unknown]

NARRATIVE: CASE EVENT DATE: 20220101
